FAERS Safety Report 7981658-7 (Version None)
Quarter: 2011Q4

REPORT INFORMATION
  Report Type: 
  Country: None (occurrence: None)
  Receive Date: 20111215
  Receipt Date: 20111205
  Transmission Date: 20120403
  Serious: Yes (Hospitalization, Other)
  Sender: FDA-Public Use
  Company Number: US-BAYER-2011-062520

PATIENT
  Age: 30 Year
  Sex: Female
  Weight: 66 kg

DRUGS (7)
  1. YAZ [Suspect]
     Indication: CONTRACEPTION
     Dosage: UNK
     Dates: start: 20070701, end: 20080601
  2. RISEDRONATE SODIUM [Concomitant]
  3. SYNTHROID [Concomitant]
  4. FLUARIX [Concomitant]
  5. YASMIN [Suspect]
     Indication: CONTRACEPTION
     Dosage: UNK
     Dates: start: 20050901, end: 20060701
  6. DIFFERIN [Concomitant]
  7. SULFOXYL [Concomitant]

REACTIONS (3)
  - INJURY [None]
  - BILIARY DYSKINESIA [None]
  - GALLBLADDER DISORDER [None]
